FAERS Safety Report 12477893 (Version 1)
Quarter: 2016Q2

REPORT INFORMATION
  Report Type: Report from Study
  Country: US (occurrence: US)
  Receive Date: 20160617
  Receipt Date: 20160617
  Transmission Date: 20160815
  Serious: Yes (Other)
  Sender: FDA-Public Use
  Company Number: US-PFIZER INC-2016292244

PATIENT
  Age: 66 Year
  Sex: Male

DRUGS (1)
  1. DILANTIN [Suspect]
     Active Substance: PHENYTOIN
     Indication: EPILEPSY
     Dosage: 1250 MG, UNK
     Route: 042

REACTIONS (3)
  - Ataxia [Recovering/Resolving]
  - Respiratory arrest [Unknown]
  - Anticonvulsant drug level increased [Recovered/Resolved]
